FAERS Safety Report 26186353 (Version 1)
Quarter: 2025Q4

REPORT INFORMATION
  Report Type: Spontaneous
  Country: US (occurrence: None)
  Receive Date: 20251221
  Receipt Date: 20251221
  Transmission Date: 20260118
  Serious: Yes (Hospitalization)
  Sender: FDA-CTU
  Company Number: None

PATIENT
  Age: 48 Year
  Sex: Female
  Weight: 74.7 kg

DRUGS (9)
  1. PHENTERMINE [Suspect]
     Active Substance: PHENTERMINE
     Indication: Weight decreased
     Route: 048
     Dates: start: 20251002, end: 20251116
  2. REPATHA [Concomitant]
     Active Substance: EVOLOCUMAB
  3. POTASSIUM CITRATE [Concomitant]
     Active Substance: POTASSIUM CITRATE
  4. D3 with K2 [Concomitant]
  5. SELENIUM [Concomitant]
     Active Substance: SELENIUM
  6. liver detox pills [Concomitant]
  7. MAGNESIUM GLYCINATE [Concomitant]
     Active Substance: MAGNESIUM GLYCINATE
  8. VITAMINS [Concomitant]
     Active Substance: VITAMINS
  9. GLUTAMINE [Concomitant]
     Active Substance: GLUTAMINE

REACTIONS (5)
  - Headache [None]
  - Hypoaesthesia [None]
  - Cerebrovascular accident [None]
  - Seizure [None]
  - Aphasia [None]

NARRATIVE: CASE EVENT DATE: 20251116
